FAERS Safety Report 8264569-1 (Version None)
Quarter: 2012Q2

REPORT INFORMATION
  Report Type: 
  Country: None (occurrence: None)
  Receive Date: 20120403
  Receipt Date: 20120323
  Transmission Date: 20120825
  Serious: Yes (Hospitalization, Other)
  Sender: FDA-Public Use
  Company Number: TPA2012A01643

PATIENT
  Age: 89 Year
  Sex: Male
  Weight: 58.9676 kg

DRUGS (2)
  1. SYNTHROID [Concomitant]
  2. PREVACID [Suspect]
     Indication: GASTROOESOPHAGEAL REFLUX DISEASE
     Dosage: 30 MG, 1/2 TABLET QD, PER ORAL
     Route: 048
     Dates: start: 20071211

REACTIONS (10)
  - INFECTION [None]
  - MALAISE [None]
  - FALL [None]
  - PNEUMONIA [None]
  - OROPHARYNGEAL PAIN [None]
  - WEIGHT DECREASED [None]
  - BALANCE DISORDER [None]
  - FEMUR FRACTURE [None]
  - FEELING ABNORMAL [None]
  - INCREASED UPPER AIRWAY SECRETION [None]
